FAERS Safety Report 6000201-5 (Version None)
Quarter: 2008Q4

REPORT INFORMATION
  Report Type: 
  Country: None (occurrence: None)
  Receive Date: 20081215
  Receipt Date: 20081203
  Transmission Date: 20090506
  Serious: Yes (Death, Life-Threatening, Other)
  Sender: FDA-Public Use
  Company Number: JP-PFIZER INC-2008091423

PATIENT

DRUGS (12)
  1. VFEND [Suspect]
     Indication: FUNGAL INFECTION
     Dosage: 400 MG, 1X/DAY
     Route: 042
     Dates: start: 20080917, end: 20080918
  2. VFEND [Suspect]
     Dosage: 200 MG, 2X/DAY
     Route: 042
     Dates: start: 20080918, end: 20080924
  3. AMBISOME [Suspect]
     Indication: FUNGAL INFECTION
     Dosage: 350 MG, 1X/DAY
     Dates: start: 20080909, end: 20080923
  4. HABEKACIN [Concomitant]
     Route: 042
     Dates: start: 20080904, end: 20080916
  5. FIRSTCIN [Concomitant]
     Route: 042
     Dates: start: 20080905, end: 20080916
  6. MODACIN [Concomitant]
     Dates: start: 20080917
  7. AMIKACIN SULFATE [Concomitant]
     Dates: start: 20080921
  8. NEUTROGIN [Concomitant]
     Dates: start: 20080825
  9. CATABON [Concomitant]
     Route: 042
     Dates: start: 20080923
  10. LASIX [Concomitant]
     Route: 042
     Dates: start: 20080906
  11. SODIUM CHLORIDE [Concomitant]
     Route: 042
     Dates: start: 20080911
  12. POTASSIUM CHLORIDE [Concomitant]
     Route: 042
     Dates: start: 20080912

REACTIONS (5)
  - ACUTE LYMPHOCYTIC LEUKAEMIA [None]
  - RESPIRATORY FAILURE [None]
  - TORSADE DE POINTES [None]
  - VENTRICULAR EXTRASYSTOLES [None]
  - VENTRICULAR FIBRILLATION [None]
